FAERS Safety Report 24617139 (Version 2)
Quarter: 2024Q4

REPORT INFORMATION
  Report Type: Spontaneous
  Country: JP (occurrence: JP)
  Receive Date: 20241114
  Receipt Date: 20241202
  Transmission Date: 20250115
  Serious: Yes (Other)
  Sender: NOVARTIS
  Company Number: JP-002147023-NVSJ2024JP013451

PATIENT

DRUGS (1)
  1. KESIMPTA [Suspect]
     Active Substance: OFATUMUMAB
     Indication: Product used for unknown indication
     Dosage: UNK, QMO
     Route: 058

REACTIONS (1)
  - Calculus urethral [Unknown]
